FAERS Safety Report 15904332 (Version 1)
Quarter: 2019Q1

REPORT INFORMATION
  Report Type: Spontaneous
  Country: US (occurrence: US)
  Receive Date: 20190204
  Receipt Date: 20190204
  Transmission Date: 20190417
  Serious: Yes (Disabling)
  Sender: FDA-Public Use
  Company Number: US-HORIZON-KRY-0052-2019

PATIENT
  Age: 64 Year
  Sex: Male

DRUGS (2)
  1. KRYSTEXXA [Suspect]
     Active Substance: PEGLOTICASE
     Indication: GOUT
     Route: 042
     Dates: start: 20180823, end: 20190124
  2. COLCHICINE. [Concomitant]
     Active Substance: COLCHICINE
     Dates: end: 20190124

REACTIONS (2)
  - Gait disturbance [Unknown]
  - Gout [Unknown]
